FAERS Safety Report 5046555-8 (Version None)
Quarter: 2006Q3

REPORT INFORMATION
  Report Type: 
  Country: None (occurrence: None)
  Receive Date: 20060705
  Receipt Date: 20060705
  Transmission Date: 20061208
  Serious: No
  Sender: FDA-Public Use
  Company Number: None

PATIENT
  Age: 41 Year
  Sex: Male
  Weight: 102.0593 kg

DRUGS (1)
  1. ZICAM   15ML   ZICAM LLC [Suspect]
     Indication: NASOPHARYNGITIS
     Dosage: ONE SQUIRT ONCE A DAY NASAL
     Route: 045
     Dates: start: 20060627, end: 20060627

REACTIONS (10)
  - AGEUSIA [None]
  - ANOSMIA [None]
  - DISCOMFORT [None]
  - FEELING ABNORMAL [None]
  - HEADACHE [None]
  - INSOMNIA [None]
  - MUSCLE SPASMS [None]
  - ORAL INTAKE REDUCED [None]
  - PHARYNGOLARYNGEAL PAIN [None]
  - SNEEZING [None]
